FAERS Safety Report 15291432 (Version 2)
Quarter: 2018Q3

REPORT INFORMATION
  Report Type: Spontaneous
  Country: US (occurrence: US)
  Receive Date: 20180817
  Receipt Date: 20180918
  Transmission Date: 20181010
  Serious: No
  Sender: FDA-Public Use
  Company Number: US-PFIZER INC-2018330696

PATIENT
  Age: 38 Year
  Sex: Female

DRUGS (1)
  1. EUCRISA [Suspect]
     Active Substance: CRISABOROLE
     Indication: DERMATITIS
     Dosage: 0.2 MG, SINGLE (ONLY APPLIED IT ONCE) (ONE TIME)
     Route: 061
     Dates: start: 20180808, end: 201808

REACTIONS (2)
  - Hypersensitivity [Unknown]
  - Application site vesicles [Unknown]

NARRATIVE: CASE EVENT DATE: 20180808
